FAERS Safety Report 7416117-3 (Version None)
Quarter: 2011Q2

REPORT INFORMATION
  Report Type: 
  Country: None (occurrence: None)
  Receive Date: 20110414
  Receipt Date: 20110316
  Transmission Date: 20111010
  Serious: No
  Sender: FDA-Public Use
  Company Number: US-BAYER-2011-024259

PATIENT
  Age: 41 Year
  Sex: Female

DRUGS (1)
  1. FINACEA [Suspect]
     Dosage: 1 DF, QD
     Route: 031
     Dates: start: 20110311, end: 20110311

REACTIONS (1)
  - RASH [None]
